FAERS Safety Report 4678310-2 (Version None)
Quarter: 2005Q2

REPORT INFORMATION
  Report Type: 
  Country: None (occurrence: None)
  Receive Date: 20050601
  Receipt Date: 20050524
  Transmission Date: 20051028
  Serious: Yes (Hospitalization)
  Sender: FDA-Public Use
  Company Number: PHEH2005US05883

PATIENT
  Age: 67 Year
  Sex: Female

DRUGS (1)
  1. ELIDEL [Suspect]
     Dosage: UNK, BID
     Route: 061
     Dates: start: 20030101

REACTIONS (7)
  - ARRHYTHMIA [None]
  - CHEILITIS [None]
  - IMPAIRED HEALING [None]
  - LIP HAEMORRHAGE [None]
  - LIP PAIN [None]
  - RASH MACULAR [None]
  - SCAB [None]
